FAERS Safety Report 12255757 (Version 2)
Quarter: 2016Q2

REPORT INFORMATION
  Report Type: Report from Study
  Country: AT (occurrence: AT)
  Receive Date: 20160412
  Receipt Date: 20160422
  Transmission Date: 20160815
  Serious: Yes (Hospitalization)
  Sender: FDA-Public Use
  Company Number: AT-ROCHE-1739965

PATIENT
  Age: 9 Year
  Sex: Male
  Weight: 32.2 kg

DRUGS (11)
  1. FENOFIBRATE. [Suspect]
     Active Substance: FENOFIBRATE
     Indication: MEDULLOBLASTOMA
     Dosage: LAST DOSE PRIOR TO SAE: 08/APR/2016
     Route: 065
     Dates: start: 20160101
  2. LEVEBON [Concomitant]
     Indication: EPILEPSY
     Route: 048
  3. FRISIUM [Concomitant]
     Active Substance: CLOBAZAM
     Indication: EPILEPSY
     Route: 048
  4. ETOPOSIDE. [Suspect]
     Active Substance: ETOPOSIDE
     Indication: MEDULLOBLASTOMA
     Dosage: LAST DOSE PRIOR TO SAE: 08/APR/2016
     Route: 065
     Dates: start: 20160101
  5. LIPOSOMAL CYTARABINE [Suspect]
     Active Substance: CYTARABINE
     Indication: MEDULLOBLASTOMA
     Dosage: LAST DOSE PRIOR TO SAE: 08/APR/2016
     Route: 065
     Dates: start: 20160101
  6. BEVACIZUMAB [Suspect]
     Active Substance: BEVACIZUMAB
     Indication: MEDULLOBLASTOMA
     Dosage: LAST DOSE PRIOR TO SAE: 08/APR/2016
     Route: 065
     Dates: start: 20160101
  7. CELECOXIB. [Suspect]
     Active Substance: CELECOXIB
     Indication: MEDULLOBLASTOMA
     Dosage: LAST DOSE PRIOR TO SAE: 08/APR/2016
     Route: 065
     Dates: start: 20160101
  8. THYREX [Concomitant]
     Active Substance: LEVOTHYROXINE SODIUM
     Indication: HYPOTHYROIDISM
     Route: 048
     Dates: start: 20160113
  9. THALIDOMIDE [Suspect]
     Active Substance: THALIDOMIDE
     Indication: MEDULLOBLASTOMA
     Dosage: LAST DOSE PRIOR TO SAE: 08/APR/2016
     Route: 065
     Dates: start: 20160101
  10. CYCLOPHOSPHAMIDE. [Suspect]
     Active Substance: CYCLOPHOSPHAMIDE
     Indication: MEDULLOBLASTOMA
     Dosage: LAST DOSE PRIOR TO SAE: 08/APR/2016
     Route: 065
     Dates: start: 20160101
  11. EUSAPRIM (AUSTRIA) [Concomitant]
     Indication: PROPHYLAXIS
     Route: 048
     Dates: start: 20160104

REACTIONS (1)
  - Confusional state [Recovered/Resolved]

NARRATIVE: CASE EVENT DATE: 20160408
